FAERS Safety Report 16438161 (Version 1)
Quarter: 2019Q2

REPORT INFORMATION
  Report Type: Report from Study
  Country: None (occurrence: BR)
  Receive Date: 20190617
  Receipt Date: 20190617
  Transmission Date: 20190711
  Serious: Yes (Hospitalization)
  Sender: FDA-Public Use
  Company Number: BR-ABBVIE-19K-020-2715079-00

PATIENT
  Sex: Female

DRUGS (4)
  1. HUMIRA [Suspect]
     Active Substance: ADALIMUMAB
     Indication: AXIAL SPONDYLOARTHRITIS
     Route: 058
     Dates: start: 20170801, end: 201902
  2. CORDAREX [Concomitant]
     Active Substance: AMIODARONE
     Indication: HYPERTENSION
  3. LOSARTAN. [Concomitant]
     Active Substance: LOSARTAN
     Indication: HYPERTENSION
  4. INDAPAMIDE. [Concomitant]
     Active Substance: INDAPAMIDE
     Indication: HYPERTENSION

REACTIONS (7)
  - Dehydration [Recovered/Resolved]
  - Cholelithiasis [Recovered/Resolved]
  - Pain [Not Recovered/Not Resolved]
  - Malaise [Recovered/Resolved]
  - Malaise [Recovered/Resolved]
  - Weight decreased [Recovering/Resolving]
  - Flatulence [Recovered/Resolved]

NARRATIVE: CASE EVENT DATE: 201902
